FAERS Safety Report 6771525-9 (Version None)
Quarter: 2010Q2

REPORT INFORMATION
  Report Type: 
  Country: None (occurrence: None)
  Receive Date: 20100616
  Receipt Date: 20100609
  Transmission Date: 20101027
  Serious: Yes (Hospitalization)
  Sender: FDA-Public Use
  Company Number: NL-B.I. PHARMACEUTICALS,INC./RIDGEFIELD-2010-NL-00293NL

PATIENT
  Sex: Female

DRUGS (12)
  1. PERSANTIN [Suspect]
     Dosage: 400 MG
     Dates: start: 20100322, end: 20100328
  2. XARELTO [Suspect]
     Indication: PROPHYLAXIS
     Dosage: 10 MG
     Dates: start: 20100320, end: 20100328
  3. NAPROXEN MERCK [Suspect]
     Indication: PAIN
     Dosage: 1000 MG
     Dates: start: 20100319, end: 20100328
  4. ACETYLSALICYLIC ACID CARDIO PCH [Suspect]
     Dosage: 80 MG
     Dates: start: 20100320, end: 20100328
  5. OMEPRAZOLE RP [Concomitant]
     Dosage: 40 MG
     Dates: start: 20090611
  6. PARACETAMOL ACTAVIS [Concomitant]
     Dosage: PRN 4DD2 TABLETS
     Dates: start: 20100319
  7. OLMETEC [Concomitant]
     Dosage: 10 MG
     Dates: start: 20091102
  8. BISOPROLOLFUMARATE PCH [Concomitant]
     Dosage: 5 MG
     Dates: start: 20091124
  9. HYDROCHLOROTHIAZIDE PCH [Concomitant]
     Dosage: 12.5 MG
     Dates: start: 20091102
  10. HYDREA [Concomitant]
     Dates: start: 19990101
  11. HYDREA [Concomitant]
     Dosage: 3000 MG
     Dates: start: 20080626
  12. ALENDRONINEZUUR MYLAN [Concomitant]
     Dosage: 10 MG
     Dates: start: 20080626

REACTIONS (1)
  - RECTAL HAEMORRHAGE [None]
